FAERS Safety Report 6555466-8 (Version None)
Quarter: 2010Q1

REPORT INFORMATION
  Report Type: 
  Country: None (occurrence: None)
  Receive Date: 20100128
  Receipt Date: 20100105
  Transmission Date: 20100710
  Serious: Yes (Hospitalization, Other)
  Sender: FDA-Public Use
  Company Number: US-BRISTOL-MYERS SQUIBB COMPANY-14910509

PATIENT
  Age: 78 Year
  Sex: Male
  Weight: 68 kg

DRUGS (25)
  1. CETUXIMAB [Suspect]
     Indication: NON-SMALL CELL LUNG CANCER
     Dosage: DAY 1 WEEKLY EVERY 21 DAYS LAST INF ON 08DEC2009
     Route: 042
     Dates: start: 20090929, end: 20091208
  2. CARBOPLATIN [Suspect]
     Indication: NON-SMALL CELL LUNG CANCER
     Dosage: LAST INF: 01DEC09;DOSE:22.2857MG
     Route: 042
     Dates: start: 20090929, end: 20091201
  3. ALIMTA [Suspect]
     Indication: NON-SMALL CELL LUNG CANCER
     Dosage: LAST INF 01DEC09;44.0476MG
     Route: 041
     Dates: start: 20090929, end: 20091201
  4. ASPIRIN [Concomitant]
     Route: 048
  5. TOPROL-XL [Concomitant]
     Route: 048
  6. PROSCAR [Concomitant]
     Route: 048
  7. ALTACE [Concomitant]
     Route: 048
  8. NORVASC [Concomitant]
     Route: 048
  9. POTASSIUM CHLORIDE [Concomitant]
     Route: 048
  10. LASIX [Concomitant]
     Route: 048
  11. TRICOR [Concomitant]
     Route: 048
  12. ZANTAC [Concomitant]
     Route: 048
  13. VALIUM [Concomitant]
     Route: 048
  14. LORTAB [Concomitant]
     Route: 048
  15. CENTRUM [Concomitant]
     Route: 048
  16. HALDOL [Concomitant]
     Route: 048
  17. DECADRON [Concomitant]
     Route: 048
  18. FOLIC ACID [Concomitant]
     Route: 048
  19. ZOFRAN [Concomitant]
     Route: 048
  20. LEXAPRO [Concomitant]
     Route: 048
  21. MEDROL [Concomitant]
     Route: 048
  22. NEXIUM [Concomitant]
     Route: 048
  23. DIFLUCAN [Concomitant]
     Route: 048
  24. VIBRAMYCIN [Concomitant]
  25. CLOTRIMAZOLE [Concomitant]

REACTIONS (1)
  - OESOPHAGITIS [None]
